FAERS Safety Report 4360465-0 (Version None)
Quarter: 2004Q2

REPORT INFORMATION
  Report Type: 
  Country: None (occurrence: None)
  Receive Date: 20040514
  Receipt Date: 20040503
  Transmission Date: 20050107
  Serious: Yes (Disabling)
  Sender: FDA-Public Use
  Company Number: 002#8#2004-00017

PATIENT
  Age: 87 Year
  Sex: Male
  Weight: 86.1834 kg

DRUGS (5)
  1. REGLAN [Suspect]
     Dosage: 5MG, 4 IN 1 D, ORAL
     Route: 048
     Dates: start: 20000201, end: 20000405
  2. CIMETIDINE HCL [Concomitant]
  3. LEVOTHYROXINE SODIUM [Concomitant]
  4. TIMOLOL-MALEATE-OPTHALMIC-SOLUTION [Concomitant]
  5. MULTI-VITAMIN [Concomitant]

REACTIONS (7)
  - ABASIA [None]
  - ANOREXIA [None]
  - INCONTINENCE [None]
  - MASKED FACIES [None]
  - MUSCLE CONTRACTURE [None]
  - MUSCLE RIGIDITY [None]
  - PARKINSONIAN REST TREMOR [None]
